FAERS Safety Report 16583796 (Version 1)
Quarter: 2019Q3

REPORT INFORMATION
  Report Type: Spontaneous
  Country: US (occurrence: US)
  Receive Date: 20190717
  Receipt Date: 20190717
  Transmission Date: 20191004
  Serious: Yes (Hospitalization, Other)
  Sender: FDA-Public Use
  Company Number: US-EMCURE PHARMACEUTICALS LTD-2019-EPL-0350

PATIENT
  Age: 28 Year
  Sex: Female

DRUGS (2)
  1. ASA [Suspect]
     Active Substance: ASPIRIN
     Dosage: 5 GRAM, SINGLE, WITHIN THE HOUR
  2. ACETAMINOPHEN. [Suspect]
     Active Substance: ACETAMINOPHEN
     Dosage: 50 GRAM, SINGLE,  WITHIN THE HOUR

REACTIONS (7)
  - Premature delivery [Unknown]
  - Metabolic acidosis [Recovered/Resolved]
  - Tachycardia foetal [Recovered/Resolved]
  - Intentional overdose [Unknown]
  - Maternal exposure during pregnancy [Unknown]
  - Respiratory alkalosis [Recovered/Resolved]
  - Hypoacusis [Unknown]
